FAERS Safety Report 7560876-6 (Version None)
Quarter: 2011Q2

REPORT INFORMATION
  Report Type: 
  Country: None (occurrence: None)
  Receive Date: 20110620
  Receipt Date: 20110620
  Transmission Date: 20111010
  Serious: No
  Sender: FDA-Public Use
  Company Number: None

PATIENT
  Age: 80 Year
  Sex: Male
  Weight: 48.9885 kg

DRUGS (1)
  1. DILTIAZEM [Suspect]
     Indication: HYPERTENSION
     Dosage: 120 MG 1X D BY MOUTH
     Route: 048

REACTIONS (3)
  - CAPSULE PHYSICAL ISSUE [None]
  - FOREIGN BODY [None]
  - MEDICATION RESIDUE [None]
